FAERS Safety Report 19840376 (Version 1)
Quarter: 2021Q3

REPORT INFORMATION
  Report Type: Spontaneous
  Country: US (occurrence: US)
  Receive Date: 20210916
  Receipt Date: 20210916
  Transmission Date: 20211014
  Serious: Yes (Hospitalization)
  Sender: FDA-Public Use
  Company Number: None

PATIENT
  Sex: Female

DRUGS (7)
  1. CIPROFLOXACN [Concomitant]
     Active Substance: CIPROFLOXACIN
  2. HUMIRA [Suspect]
     Active Substance: ADALIMUMAB
     Indication: PSORIATIC ARTHROPATHY
     Dosage: Q
     Route: 058
     Dates: start: 20190312
  3. MESALAMINE. [Concomitant]
     Active Substance: MESALAMINE
  4. DROSPIRENONE [Concomitant]
     Active Substance: DROSPIRENONE
  5. CEFADROXIL. [Concomitant]
     Active Substance: CEFADROXIL
  6. ONDANSETRON [Concomitant]
     Active Substance: ONDANSETRON
  7. ETODOLAC. [Concomitant]
     Active Substance: ETODOLAC

REACTIONS (2)
  - Kidney infection [None]
  - Cystitis [None]
